FAERS Safety Report 6506232-0 (Version None)
Quarter: 2009Q4

REPORT INFORMATION
  Report Type: 
  Country: None (occurrence: None)
  Receive Date: 20091218
  Receipt Date: 20091210
  Transmission Date: 20100525
  Serious: Yes (Hospitalization)
  Sender: FDA-Public Use
  Company Number: PHHO2009DE09105

PATIENT
  Sex: Male
  Weight: 93 kg

DRUGS (4)
  1. CERTICAN [Suspect]
     Indication: RENAL TRANSPLANT
     Dosage: 0.5 MG, BID
     Route: 048
     Dates: start: 20081010
  2. NEORAL [Suspect]
     Indication: RENAL TRANSPLANT
  3. MYFORTIC [Suspect]
     Indication: RENAL TRANSPLANT
     Dosage: 360 MG, BID
     Route: 048
     Dates: start: 20080709
  4. CORTISON [Suspect]

REACTIONS (6)
  - KIDNEY FIBROSIS [None]
  - NEPHROPATHY TOXIC [None]
  - NEPHROSCLEROSIS [None]
  - PROTEINURIA [None]
  - RENAL TUBULAR ATROPHY [None]
  - THERAPEUTIC AGENT TOXICITY [None]
